FAERS Safety Report 18687738 (Version 1)
Quarter: 2020Q4

REPORT INFORMATION
  Report Type: Spontaneous
  Country: US (occurrence: US)
  Receive Date: 20201230
  Receipt Date: 20201230
  Transmission Date: 20210114
  Serious: No
  Sender: FDA-Public Use
  Company Number: None

PATIENT
  Age: 39 Year
  Sex: Female
  Weight: 71.94 kg

DRUGS (9)
  1. ADVAIR HFA [Concomitant]
     Active Substance: FLUTICASONE PROPIONATE\SALMETEROL XINAFOATE
     Dates: start: 20190923
  2. MAGNEZIUM OXIDE [Concomitant]
     Dates: start: 20190924
  3. LORAZEPAM 2.5 MG [Concomitant]
     Dates: start: 20190923
  4. DESMOPRESSIN 0.2 MG [Concomitant]
     Dates: start: 20190923
  5. ESCITALOPRAM [Suspect]
     Active Substance: ESCITALOPRAM OXALATE
     Indication: INTERMITTENT EXPLOSIVE DISORDER
     Route: 048
     Dates: start: 20190923, end: 20201125
  6. ATORVASTATIN 20 MG [Concomitant]
     Active Substance: ATORVASTATIN
     Dates: start: 20190924
  7. LEVETIRACETAM 1500 MG [Concomitant]
     Dates: start: 20190923
  8. LISINOPRIL 5 MG [Concomitant]
     Active Substance: LISINOPRIL
     Dates: start: 20190923
  9. LURASIDONE 80 MG [Concomitant]
     Active Substance: LURASIDONE
     Dates: start: 20190924

REACTIONS (3)
  - QRS axis abnormal [None]
  - Electrocardiogram T wave abnormal [None]
  - Electrocardiogram QT prolonged [None]

NARRATIVE: CASE EVENT DATE: 20200917
